FAERS Safety Report 9089978 (Version 1)
Quarter: 2013Q1

REPORT INFORMATION
  Report Type: Spontaneous
  Country: GB (occurrence: GB)
  Receive Date: 20130131
  Receipt Date: 20130131
  Transmission Date: 20140127
  Serious: Yes (Disabling)
  Sender: FDA-Public Use
  Company Number: GB-009507513-1301GBR012038

PATIENT
  Age: 27 Year
  Sex: Male
  Weight: 76.2 kg

DRUGS (1)
  1. PROPECIA 1MG FILM-COATED TABLET [Suspect]
     Indication: ALOPECIA
     Dosage: 1 MG, QD
     Route: 048
     Dates: start: 20110415, end: 20130105

REACTIONS (3)
  - Painful erection [Not Recovered/Not Resolved]
  - Loss of libido [Not Recovered/Not Resolved]
  - Peyronie^s disease [Not Recovered/Not Resolved]
